FAERS Safety Report 8669627 (Version 3)
Quarter: 2015Q4

REPORT INFORMATION
  Report Type: Spontaneous
  Country: US (occurrence: US)
  Receive Date: 20120718
  Receipt Date: 20151124
  Transmission Date: 20160305
  Serious: Yes (Hospitalization, Other)
  Sender: FDA-Public Use
  Company Number: US-BAYER-2012-070952

PATIENT
  Age: 40 Year
  Sex: Female
  Weight: 57 kg

DRUGS (5)
  1. IRON [Concomitant]
     Active Substance: IRON
     Dosage: UNK
     Dates: start: 20090813
  2. TUMS [Concomitant]
     Active Substance: CALCIUM CARBONATE
     Indication: BACK PAIN
  3. ADVIL [Concomitant]
     Active Substance: IBUPROFEN
     Indication: DYSMENORRHOEA
  4. YAZ [Suspect]
     Active Substance: DROSPIRENONE\ETHINYL ESTRADIOL
     Indication: PREMENSTRUAL SYNDROME
     Dosage: UNK
     Dates: start: 200903, end: 200905
  5. YAZ [Suspect]
     Active Substance: DROSPIRENONE\ETHINYL ESTRADIOL
     Indication: CONTRACEPTION

REACTIONS (8)
  - Embolism arterial [None]
  - Intracardiac thrombus [None]
  - Pain [None]
  - Injury [None]
  - General physical health deterioration [None]
  - Myocardial infarction [None]
  - Emotional distress [None]
  - Anxiety [None]

NARRATIVE: CASE EVENT DATE: 20090826
